FAERS Safety Report 6504143-8 (Version None)
Quarter: 2009Q4

REPORT INFORMATION
  Report Type: 
  Country: None (occurrence: None)
  Receive Date: 20091217
  Receipt Date: 20091208
  Transmission Date: 20100525
  Serious: Yes (Life-Threatening, Hospitalization)
  Sender: FDA-Public Use
  Company Number: GB-PFIZER INC-2009295378

PATIENT
  Age: 48 Year
  Sex: Female
  Weight: 45 kg

DRUGS (7)
  1. VFEND [Suspect]
     Indication: CEREBRAL ASPERGILLOSIS
     Dosage: 300 MG, 2X/DAY
     Route: 042
     Dates: start: 20090601, end: 20090101
  2. VFEND [Suspect]
     Dosage: 300 MG, 2X/DAY
     Route: 048
     Dates: start: 20090101
  3. TRAMADOL [Concomitant]
     Indication: PAIN
     Dosage: 100 MG, UNK
     Route: 048
  4. LANSOPRAZOLE [Concomitant]
     Indication: ULCER
     Dosage: 30 MG, UNK
     Route: 048
  5. ATENOLOL [Concomitant]
     Indication: HYPERTENSION
     Dosage: 50 MG, UNK
     Route: 048
  6. PARACETAMOL [Concomitant]
     Indication: PAIN
     Dosage: 1 G, UNK
     Route: 048
  7. DIAZEPAM [Concomitant]
     Indication: ANXIETY
     Dosage: 2.5 MG, UNK
     Route: 048

REACTIONS (3)
  - CHOLESTASIS [None]
  - GUILLAIN-BARRE SYNDROME [None]
  - METABOLIC ACIDOSIS [None]
